FAERS Safety Report 20993826 (Version 1)
Quarter: 2022Q2

REPORT INFORMATION
  Report Type: Spontaneous
  Country: US (occurrence: None)
  Receive Date: 20220621
  Receipt Date: 20220621
  Transmission Date: 20220720
  Serious: No
  Sender: FDA-Public Use
  Company Number: None

PATIENT

DRUGS (2)
  1. OZEMPIC [Suspect]
     Active Substance: SEMAGLUTIDE
  2. HUMULIN R [Suspect]
     Active Substance: INSULIN HUMAN

REACTIONS (4)
  - Overdose [None]
  - Wrong product administered [None]
  - Product label confusion [None]
  - Product packaging confusion [None]
